FAERS Safety Report 7098240-9 (Version None)
Quarter: 2010Q4

REPORT INFORMATION
  Report Type: 
  Country: None (occurrence: None)
  Receive Date: 20101104
  Receipt Date: 20101018
  Transmission Date: 20110411
  Serious: Yes (Disabling)
  Sender: FDA-Public Use
  Company Number: APP201000865

PATIENT
  Age: 73 Year
  Sex: Female

DRUGS (1)
  1. GANCICLOVIR [Suspect]
     Indication: CYTOMEGALOVIRUS CHORIORETINITIS
     Dosage: 4MG/0.04ML, OTHER
     Route: 050

REACTIONS (5)
  - FOREIGN BODY IN EYE [None]
  - INTRAOCULAR PRESSURE INCREASED [None]
  - MACULAR OEDEMA [None]
  - OPTIC ATROPHY [None]
  - VISUAL ACUITY REDUCED [None]
